FAERS Safety Report 6298855-1 (Version None)
Quarter: 2009Q3

REPORT INFORMATION
  Report Type: 
  Country: None (occurrence: None)
  Receive Date: 20090806
  Receipt Date: 20090731
  Transmission Date: 20100115
  Serious: Yes (Other)
  Sender: FDA-Public Use
  Company Number: BR-ASTRAZENECA-2009UW21662

PATIENT
  Age: 73 Year
  Sex: Female

DRUGS (4)
  1. ATACAND [Suspect]
     Indication: HYPERTENSION
     Route: 048
     Dates: start: 20090101
  2. LORAX [Concomitant]
     Route: 048
  3. CLOPIDOGREL [Concomitant]
     Route: 048
  4. PURAN T4 [Concomitant]
     Indication: HYPOTHYROIDISM
     Route: 048

REACTIONS (6)
  - ABDOMINAL PAIN UPPER [None]
  - BLOOD PRESSURE FLUCTUATION [None]
  - COUGH [None]
  - FALL [None]
  - PAIN IN EXTREMITY [None]
  - TENDON RUPTURE [None]
